FAERS Safety Report 25892791 (Version 1)
Quarter: 2025Q4

REPORT INFORMATION
  Report Type: Spontaneous
  Country: EU (occurrence: EU)
  Receive Date: 20251007
  Receipt Date: 20251007
  Transmission Date: 20260118
  Serious: No
  Sender: TEIKOKU
  Company Number: EU-GRUNENTHAL-2025-110759

PATIENT
  Sex: Female
  Weight: 50 kg

DRUGS (3)
  1. LIDOCAINE [Suspect]
     Active Substance: LIDOCAINE
     Indication: Scar pain
     Dosage: 0.25 DOSAGE FORM, 1/DAY
     Route: 061
     Dates: start: 20250115
  2. LIDOCAINE [Suspect]
     Active Substance: LIDOCAINE
     Dosage: 1 DOSAGE FORM, 1/DAY
     Route: 061
  3. GABAPENTIN [Concomitant]
     Active Substance: GABAPENTIN
     Indication: Product used for unknown indication
     Dosage: UNK
     Dates: start: 20250104

REACTIONS (3)
  - Condition aggravated [Recovering/Resolving]
  - Adverse event [Unknown]
  - Hyperaesthesia [Unknown]
